FAERS Safety Report 18633349 (Version 1)
Quarter: 2020Q4

REPORT INFORMATION
  Report Type: Spontaneous
  Country: JP (occurrence: JP)
  Receive Date: 20201218
  Receipt Date: 20201218
  Transmission Date: 20210114
  Serious: Yes (Other)
  Sender: FDA-Public Use
  Company Number: JP-PFIZER INC-2020490259

PATIENT
  Age: 22 Year
  Sex: Male
  Weight: 36 kg

DRUGS (8)
  1. EXCEGRAN [Concomitant]
     Active Substance: ZONISAMIDE
     Dosage: UNK
  2. LULICON [Concomitant]
     Active Substance: LULICONAZOLE
     Dosage: 10 MG
     Dates: start: 20201009
  3. LANDSEN [Concomitant]
     Active Substance: CLONAZEPAM
     Dosage: UNK
  4. MAGMITT [Concomitant]
     Active Substance: MAGNESIUM OXIDE
     Dosage: UNK
  5. SODIUM VALPROATE [Concomitant]
     Active Substance: VALPROATE SODIUM
     Dosage: UNK
  6. ESCRE [Concomitant]
     Active Substance: CHLORAL HYDRATE
     Dosage: UNK, AS NEEDED
  7. CALONAL [Concomitant]
     Active Substance: ACETAMINOPHEN
     Dosage: UNK, AS NEEDED
     Dates: start: 20201011
  8. ZYVOX [Suspect]
     Active Substance: LINEZOLID
     Indication: POSTOPERATIVE WOUND INFECTION
     Dosage: 600 MG, 2X/DAY
     Route: 041
     Dates: start: 20201021, end: 20201022

REACTIONS (2)
  - Rash [Recovered/Resolved]
  - Seizure cluster [Recovering/Resolving]

NARRATIVE: CASE EVENT DATE: 20201021
